FAERS Safety Report 5291369-7 (Version None)
Quarter: 2007Q2

REPORT INFORMATION
  Report Type: 
  Country: None (occurrence: None)
  Receive Date: 20070402
  Receipt Date: 20070315
  Transmission Date: 20071010
  Serious: Yes (Death)
  Sender: FDA-Public Use
  Company Number: 2007JP000892

PATIENT
  Sex: Male
  Weight: 62 kg

DRUGS (9)
  1. PROGRAF [Suspect]
     Indication: BONE MARROW TRANSPLANT
     Dosage: UID/QD,
     Dates: start: 20050406, end: 20050527
  2. PROGRAF [Suspect]
     Indication: BONE MARROW TRANSPLANT
     Dosage: BID, ORAL
     Route: 048
     Dates: start: 20050528, end: 20060419
  3. ALKERAN [Concomitant]
  4. PREDNISOLONE [Concomitant]
  5. PREDNISOLONE [Concomitant]
  6. GLYCYRON (AMINOACETIC ACID, GLYCYRRHIZIC ACID, DL-METHIONINE) TABLET [Concomitant]
  7. URSO (URSODEOXYCHOLIC ACID) TABLET [Concomitant]
  8. LAMIVUDINE (LAMIVUDINE) TABLET [Concomitant]
  9. METHOTREXATE (METHOTREXATE SODIUM) INJECTION [Concomitant]

REACTIONS (6)
  - ABDOMINAL DISTENSION [None]
  - COMPLICATIONS OF TRANSPLANTED LIVER [None]
  - HEPATIC FAILURE [None]
  - HEPATITIS B [None]
  - HEPATITIS FULMINANT [None]
  - OEDEMA PERIPHERAL [None]
